FAERS Safety Report 19061583 (Version 13)
Quarter: 2023Q4

REPORT INFORMATION
  Report Type: Report from Study
  Country: CA (occurrence: CA)
  Receive Date: 20210326
  Receipt Date: 20231117
  Transmission Date: 20240110
  Serious: Yes (Death, Hospitalization)
  Sender: FDA-Public Use
  Company Number: PHHY2017CA115644

PATIENT
  Age: 83 Year
  Sex: Male

DRUGS (3)
  1. SANDOSTATIN LAR DEPOT [Suspect]
     Active Substance: OCTREOTIDE ACETATE
     Indication: Carcinoid syndrome
     Dosage: 30 MG, Q4W
     Route: 030
     Dates: start: 20170601
  2. SANDOSTATIN LAR DEPOT [Suspect]
     Active Substance: OCTREOTIDE ACETATE
     Indication: Carcinoid tumour
     Dosage: 30 MG, Q4W
     Route: 030
     Dates: start: 20180418
  3. SANDOSTATIN LAR DEPOT [Suspect]
     Active Substance: OCTREOTIDE ACETATE
     Dosage: 30 MG, Q4W (EVERY 18 DAYS)
     Route: 065

REACTIONS (21)
  - Death [Fatal]
  - Confusional state [Unknown]
  - Fall [Unknown]
  - Heart rate increased [Unknown]
  - Gastrointestinal infection [Recovering/Resolving]
  - Malaise [Unknown]
  - Gastroenteritis viral [Unknown]
  - Joint injury [Unknown]
  - Arthralgia [Recovered/Resolved]
  - Pain in extremity [Recovered/Resolved]
  - Disorientation [Unknown]
  - COVID-19 [Unknown]
  - Weight decreased [Unknown]
  - Pain [Recovering/Resolving]
  - Abdominal discomfort [Unknown]
  - Abdominal pain upper [Not Recovered/Not Resolved]
  - Dyspepsia [Recovering/Resolving]
  - Injection site pain [Unknown]
  - Injection site swelling [Unknown]
  - Diarrhoea [Unknown]
  - Inappropriate schedule of product administration [Unknown]

NARRATIVE: CASE EVENT DATE: 20170802
